FAERS Safety Report 24686385 (Version 1)
Quarter: 2024Q4

REPORT INFORMATION
  Report Type: Report from Study
  Country: US (occurrence: US)
  Receive Date: 20241202
  Receipt Date: 20241202
  Transmission Date: 20250114
  Serious: Yes (Other)
  Sender: SUNOVION
  Company Number: US-SMPA-2024SPA005468

PATIENT

DRUGS (1)
  1. ORGOVYX [Suspect]
     Active Substance: RELUGOLIX
     Indication: Prostate cancer
     Dosage: 120 MG, QD
     Route: 048
     Dates: start: 20240907

REACTIONS (5)
  - Renal impairment [Unknown]
  - Blood pressure abnormal [Unknown]
  - Gait disturbance [Unknown]
  - Fatigue [Unknown]
  - Incorrect dose administered [Unknown]
